FAERS Safety Report 21530401 (Version 1)
Quarter: 2022Q4

REPORT INFORMATION
  Report Type: Spontaneous
  Country: CN (occurrence: CN)
  Receive Date: 20221031
  Receipt Date: 20221031
  Transmission Date: 20230113
  Serious: Yes (Other)
  Sender: FDA-Public Use
  Company Number: CN-PFIZER INC-PV202200091785

PATIENT
  Age: 7 Year
  Sex: Female
  Weight: 26 kg

DRUGS (1)
  1. METHOTREXATE SODIUM [Suspect]
     Active Substance: METHOTREXATE SODIUM
     Indication: Chemotherapy
     Dosage: 5000.000 MG, 1X/DAY
     Route: 041
     Dates: start: 20221021, end: 20221022

REACTIONS (2)
  - Myelosuppression [Not Recovered/Not Resolved]
  - Platelet count increased [Not Recovered/Not Resolved]

NARRATIVE: CASE EVENT DATE: 20221024
